FAERS Safety Report 6801519-6 (Version None)
Quarter: 2010Q2

REPORT INFORMATION
  Report Type: 
  Country: None (occurrence: None)
  Receive Date: 20100629
  Receipt Date: 20100616
  Transmission Date: 20101027
  Serious: Yes (Hospitalization, Other)
  Sender: FDA-Public Use
  Company Number: US-ELI_LILLY_AND_COMPANY-US201006004799

PATIENT
  Sex: Female

DRUGS (2)
  1. FORTEO [Suspect]
     Indication: OSTEOPOROSIS
     Dosage: 20 UG, DAILY (1/D)
  2. TRAMADOL HCL [Concomitant]
     Indication: PAIN

REACTIONS (15)
  - ASTHENIA [None]
  - BACK INJURY [None]
  - CARDIAC FAILURE CONGESTIVE [None]
  - EATING DISORDER [None]
  - FALL [None]
  - FRACTURE [None]
  - HEART RATE ABNORMAL [None]
  - HOSPITALISATION [None]
  - ILL-DEFINED DISORDER [None]
  - PAIN [None]
  - RENAL FAILURE [None]
  - SKELETAL INJURY [None]
  - THROMBOSIS [None]
  - URINARY TRACT INFECTION [None]
  - URINE OUTPUT DECREASED [None]
